FAERS Safety Report 16451173 (Version 1)
Quarter: 2019Q2

REPORT INFORMATION
  Report Type: Spontaneous
  Country: US (occurrence: US)
  Receive Date: 20190619
  Receipt Date: 20190619
  Transmission Date: 20190711
  Serious: No
  Sender: FDA-Public Use
  Company Number: US-PFIZER INC-2019257844

PATIENT
  Age: 50 Year
  Sex: Female

DRUGS (1)
  1. ADVIL LIQUI-GELS [Suspect]
     Active Substance: IBUPROFEN
     Indication: SPINAL STENOSIS
     Dosage: UNK, 3X/DAY(BETWEEN 200 TO 600, THREE TIMES A DAY)

REACTIONS (3)
  - Gastritis [Unknown]
  - Off label use [Unknown]
  - Product use in unapproved indication [Unknown]
